FAERS Safety Report 14970821 (Version 5)
Quarter: 2018Q3

REPORT INFORMATION
  Report Type: Report from Study
  Country: US (occurrence: US)
  Receive Date: 20180604
  Receipt Date: 20180713
  Transmission Date: 20181010
  Serious: Yes (Hospitalization, Other)
  Sender: FDA-Public Use
  Company Number: US-JNJFOC-20180542288

PATIENT
  Age: 15 Year
  Sex: Female
  Weight: 77.9 kg

DRUGS (4)
  1. REMICADE [Suspect]
     Active Substance: INFLIXIMAB
     Indication: INFLAMMATORY BOWEL DISEASE
     Route: 042
     Dates: start: 20150313, end: 20180426
  2. CEFDINIR. [Concomitant]
     Active Substance: CEFDINIR
     Route: 065
  3. VITAMIN D [Concomitant]
     Active Substance: CHOLECALCIFEROL
     Route: 065
  4. IRON [Concomitant]
     Active Substance: IRON
     Route: 065

REACTIONS (2)
  - Cellulitis [Recovered/Resolved]
  - Pilonidal cyst [Recovered/Resolved]

NARRATIVE: CASE EVENT DATE: 20180521
